FAERS Safety Report 16151348 (Version 1)
Quarter: 2019Q2

REPORT INFORMATION
  Report Type: Spontaneous
  Country: FR (occurrence: FR)
  Receive Date: 20190403
  Receipt Date: 20190403
  Transmission Date: 20190711
  Serious: Yes (Hospitalization, Other)
  Sender: FDA-Public Use
  Company Number: FR-BRISTOL-MYERS SQUIBB COMPANY-BMS-2019-029188

PATIENT
  Age: 13 Year
  Sex: Female
  Weight: 26.4 kg

DRUGS (3)
  1. BACTRIM [Concomitant]
     Active Substance: SULFAMETHOXAZOLE\TRIMETHOPRIM
     Indication: PRODUCT USED FOR UNKNOWN INDICATION
     Dosage: UNK
     Route: 065
  2. ETOPOPHOS [Suspect]
     Active Substance: ETOPOSIDE PHOSPHATE
     Indication: GERM CELL CANCER
     Dosage: 520 MILLIGRAM, QD
     Route: 041
     Dates: start: 20180223, end: 20180225
  3. TEPADINA [Suspect]
     Active Substance: THIOTEPA
     Indication: GERM CELL CANCER
     Dosage: 310 MILLIGRAM
     Route: 041
     Dates: start: 20180223, end: 20180225

REACTIONS (4)
  - Influenza [Recovered/Resolved]
  - Mucosal inflammation [Recovered/Resolved]
  - Starvation [Recovered/Resolved]
  - Off label use [Unknown]

NARRATIVE: CASE EVENT DATE: 20180227
